FAERS Safety Report 8725312 (Version 2)
Quarter: 2012Q4

REPORT INFORMATION
  Report Type: 
  Country: JP (occurrence: JP)
  Receive Date: 20120815
  Receipt Date: 20120912
  Transmission Date: 20130627
  Serious: Yes (Hospitalization)
  Sender: FDA-Public Use
  Company Number: JP-B.I. PHARMACEUTICALS,INC./RIDGEFIELD-2012-BP-17843NB

PATIENT
  Age: 63 Year
  Sex: Male
  Weight: 71 kg

DRUGS (3)
  1. PRADAXA [Suspect]
     Indication: THROMBOSIS PROPHYLAXIS
     Dosage: 300 mg
     Route: 048
     Dates: start: 20120704, end: 20120715
  2. NIFELANTERN CR [Concomitant]
     Indication: BLOOD PRESSURE MANAGEMENT
     Dosage: 40 mg
     Route: 048
  3. NU-LOTAN [Concomitant]
     Indication: BLOOD PRESSURE MANAGEMENT
     Dosage: 25 mg
     Route: 048

REACTIONS (1)
  - Oesophageal ulcer [Recovered/Resolved]
